FAERS Safety Report 8008005-9 (Version None)
Quarter: 2011Q4

REPORT INFORMATION
  Report Type: 
  Country: None (occurrence: None)
  Receive Date: 20111227
  Receipt Date: 20111219
  Transmission Date: 20120403
  Serious: Yes (Hospitalization)
  Sender: FDA-Public Use
  Company Number: PHHY2011FR94200

PATIENT
  Sex: Male

DRUGS (3)
  1. ANTICOAGULANTS [Concomitant]
     Dosage: UNK UKN, UNK
     Dates: start: 20111016, end: 20111021
  2. ZOMETA [Suspect]
     Indication: HYPERCALCAEMIA
     Dosage: 4 MG, UNK
     Dates: start: 20111013
  3. ASPIRIN [Concomitant]
     Dosage: 75 MG, DAILY
     Dates: start: 20090101

REACTIONS (3)
  - ATRIAL FIBRILLATION [None]
  - BLOOD THYROID STIMULATING HORMONE INCREASED [None]
  - ARRHYTHMIA [None]
